FAERS Safety Report 5151110-5 (Version None)
Quarter: 2006Q4

REPORT INFORMATION
  Report Type: 
  Country: None (occurrence: None)
  Receive Date: 20061114
  Receipt Date: 20061114
  Transmission Date: 20070319
  Serious: Yes (Other)
  Sender: FDA-Public Use
  Company Number: None

PATIENT
  Sex: Female
  Weight: 74.8435 kg

DRUGS (2)
  1. CYMBALTA [Suspect]
     Indication: ANGER
     Dosage: 60 MG   1 DAILY   PO
     Route: 048
  2. CYMBALTA [Suspect]
     Indication: STRESS
     Dosage: 60 MG   1 DAILY   PO
     Route: 048

REACTIONS (13)
  - ASTHENIA [None]
  - BACK PAIN [None]
  - COMMUNICATION DISORDER [None]
  - CONFUSIONAL STATE [None]
  - DRUG WITHDRAWAL SYNDROME [None]
  - FEELING ABNORMAL [None]
  - HEADACHE [None]
  - IMPAIRED DRIVING ABILITY [None]
  - IMPAIRED WORK ABILITY [None]
  - INFLUENZA LIKE ILLNESS [None]
  - PAIN [None]
  - PARAESTHESIA [None]
  - VISUAL DISTURBANCE [None]
